FAERS Safety Report 9193429 (Version 1)
Quarter: 2013Q1

REPORT INFORMATION
  Report Type: Spontaneous
  Country: US (occurrence: None)
  Receive Date: 20120703
  Receipt Date: 20120703
  Transmission Date: 20140127
  Serious: No
  Sender: FDA-Public Use
  Company Number: PHEH2012US007073

PATIENT
  Age: 32 Year
  Sex: Female
  Weight: 84.4 kg

DRUGS (1)
  1. GILENYA (FTY) CAPSULE, 0.5 MG [Suspect]
     Route: 048

REACTIONS (3)
  - Insomnia [None]
  - Somnolence [None]
  - Constipation [None]
